FAERS Safety Report 24650153 (Version 2)
Quarter: 2024Q4

REPORT INFORMATION
  Report Type: Spontaneous
  Country: US (occurrence: US)
  Receive Date: 20241122
  Receipt Date: 20241129
  Transmission Date: 20250115
  Serious: Yes (Other)
  Sender: ALEXION PHARMACEUTICALS
  Company Number: US-AstraZeneca-CH-00751552A

PATIENT
  Weight: 94.785 kg

DRUGS (4)
  1. WAINUA [Suspect]
     Active Substance: EPLONTERSEN
     Dosage: 45 MILLIGRAM, QMONTH
  2. WAINUA [Suspect]
     Active Substance: EPLONTERSEN
     Dosage: 45 MILLIGRAM, QMONTH
  3. WAINUA [Suspect]
     Active Substance: EPLONTERSEN
     Dosage: 45 MILLIGRAM, QMONTH
  4. WAINUA [Suspect]
     Active Substance: EPLONTERSEN
     Dosage: 45 MILLIGRAM, QMONTH

REACTIONS (2)
  - Neuropathy peripheral [Unknown]
  - Chills [Unknown]
